FAERS Safety Report 17454054 (Version 1)
Quarter: 2020Q1

REPORT INFORMATION
  Report Type: Spontaneous
  Country: CA (occurrence: CA)
  Receive Date: 20200224
  Receipt Date: 20200224
  Transmission Date: 20200409
  Serious: Yes (Life-Threatening, Hospitalization, Other)
  Sender: FDA-Public Use
  Company Number: CA-BAXTER-2020BAX003507

PATIENT
  Age: 11 Year
  Sex: Male

DRUGS (6)
  1. BICARBONATE CONCENTRATION D17000 [Suspect]
     Active Substance: SODIUM BICARBONATE
     Indication: TOXICITY TO VARIOUS AGENTS
  2. METOPROLOL TARTRATE. [Concomitant]
     Active Substance: METOPROLOL TARTRATE
     Route: 065
  3. AMIODARONE [Suspect]
     Active Substance: AMIODARONE
     Indication: VENTRICULAR TACHYCARDIA
     Route: 065
  4. METOPROLOL TARTRATE. [Concomitant]
     Active Substance: METOPROLOL TARTRATE
     Route: 065
  5. BICARBONATE CONCENTRATION D17000 [Suspect]
     Active Substance: SODIUM BICARBONATE
     Indication: VENTRICULAR TACHYCARDIA
     Route: 042
  6. METOPROLOL TARTRATE. [Concomitant]
     Active Substance: METOPROLOL TARTRATE
     Indication: VENTRICULAR TACHYCARDIA
     Route: 065

REACTIONS (1)
  - Treatment failure [Recovered/Resolved]
